FAERS Safety Report 6301619-3 (Version None)
Quarter: 2009Q3

REPORT INFORMATION
  Report Type: 
  Country: None (occurrence: None)
  Receive Date: 20090807
  Receipt Date: 20090224
  Transmission Date: 20100115
  Serious: Yes (Other)
  Sender: FDA-Public Use
  Company Number: US-BAYER-200816408NA

PATIENT
  Age: 51 Year
  Sex: Female
  Weight: 64 kg

DRUGS (67)
  1. MAGNEVIST [Suspect]
     Indication: FISTULOGRAM
     Dosage: TOTAL DAILY DOSE: 35 ML
     Route: 042
     Dates: start: 20060926, end: 20060926
  2. MAGNEVIST [Suspect]
     Dates: start: 20061128, end: 20061128
  3. OMNISCAN [Suspect]
     Indication: FISTULOGRAM
     Route: 042
  4. OPTIMARK [Suspect]
     Indication: FISTULOGRAM
     Route: 042
  5. MULTIHANCE [Suspect]
     Indication: FISTULOGRAM
     Route: 042
  6. PROHANCE [Suspect]
     Indication: FISTULOGRAM
     Route: 042
  7. STERIOIDS [Concomitant]
  8. PREDNISONE [Concomitant]
     Dosage: MR OF 29-JUL-2007 TAPER OF PREDNISONE 40MG DAILY X 2 DAYS, THEN 20 MG DAILY X 2 DAYS, THEN OFF
     Dates: start: 20070729, end: 20070801
  9. LEVOTHROID [Concomitant]
     Dosage: AS OF 27-MAR-2007
     Route: 048
  10. LEVOTHROID [Concomitant]
     Dosage: TOTAL DAILY DOSE: 0.050 MG  UNIT DOSE: 0.025 MG
  11. ATENOLOL [Concomitant]
     Route: 048
  12. ATENOLOL [Concomitant]
     Dosage: TOTAL DAILY DOSE: 50 MG  UNIT DOSE: 50 MG
     Route: 048
  13. COUMADIN [Concomitant]
     Route: 048
     Dates: end: 20070101
  14. COUMADIN [Concomitant]
     Dosage: 1 TABLET SUNDAY AND THURSDAY; MR 29-JUL-2007 1 TABLET SUNDAY AND TUESDAY
  15. COUMADIN [Concomitant]
     Dosage: AS USED: 2.5 MG  UNIT DOSE: 5 MG
  16. PROTONIX [Concomitant]
     Dosage: TOTAL DAILY DOSE: 80 MG  UNIT DOSE: 40 MG
     Route: 048
  17. PROTONIX [Concomitant]
  18. TUMS [Concomitant]
     Route: 048
  19. TUMS [Concomitant]
     Dosage: TOTAL DAILY DOSE: 1000 MG  UNIT DOSE: 500 MG
     Route: 048
  20. REGLAN [Concomitant]
     Dosage: TOTAL DAILY DOSE: 5 MG  UNIT DOSE: 5 MG
  21. AMIODARONE HCL [Concomitant]
     Dosage: TOTAL DAILY DOSE: 200 MG  UNIT DOSE: 200 MG
     Route: 048
  22. RENAGEL [Concomitant]
     Dosage: 4-5 CAPSULES W/MEALS AND 3-4 CAPSULES W/SNACKS
     Route: 048
  23. RENAGEL [Concomitant]
     Dosage: MR 29-JUL-2007: SIX TABLETS WITH MEALS, THREE TABLETS WITH SNACKS
  24. EPOGEN [Concomitant]
  25. VICODIN [Concomitant]
  26. NEPHRO-VITE [Concomitant]
     Dosage: 1
     Route: 048
  27. PROCARDIA XL [Concomitant]
     Route: 048
  28. ALLOPURINOL [Concomitant]
     Route: 048
  29. ALLOPURINOL [Concomitant]
     Dosage: MR 03-JUN-1996: QAM
  30. PRAVACHOL [Concomitant]
     Route: 048
  31. PRILOSEC [Concomitant]
     Route: 048
  32. PHOSLO [Concomitant]
     Dosage: 1 TABLET TID W/MEALS
  33. EPOETIN [Concomitant]
  34. NIFEDIPINE [Concomitant]
  35. PLENDIL [Concomitant]
     Route: 048
  36. SENSIPAR [Concomitant]
     Route: 048
  37. SENSIPAR [Concomitant]
     Dates: start: 20060101, end: 20070301
  38. VITAMIN B-12 [Concomitant]
     Dosage: 1,000 MCG/ML
  39. CYCLOSPORINE [Concomitant]
     Dosage: 100 MG Q AM AND 50 MG Q PM
  40. IMODIUM [Concomitant]
  41. IMMUNE GLOBULIN INTRAVENOUS (HUMAN) [Concomitant]
     Route: 042
     Dates: start: 20070613, end: 20070613
  42. IMMUNE GLOBULIN INTRAVENOUS (HUMAN) [Concomitant]
     Route: 042
     Dates: start: 20070620, end: 20070620
  43. IMMUNE GLOBULIN INTRAVENOUS (HUMAN) [Concomitant]
     Route: 042
     Dates: start: 20070725, end: 20070725
  44. IMMUNE GLOBULIN INTRAVENOUS (HUMAN) [Concomitant]
     Route: 042
     Dates: start: 20070622, end: 20070622
  45. IMMUNE GLOBULIN INTRAVENOUS (HUMAN) [Concomitant]
     Route: 042
     Dates: start: 20070615, end: 20070615
  46. TYLENOL (CAPLET) [Concomitant]
     Route: 048
     Dates: start: 20070620, end: 20070620
  47. TYLENOL (CAPLET) [Concomitant]
     Route: 048
     Dates: start: 20070613, end: 20070613
  48. TYLENOL (CAPLET) [Concomitant]
     Route: 048
     Dates: start: 20070615, end: 20070615
  49. TYLENOL (CAPLET) [Concomitant]
     Route: 048
     Dates: start: 20070622, end: 20070622
  50. TYLENOL (CAPLET) [Concomitant]
  51. TYLENOL (CAPLET) [Concomitant]
     Route: 048
     Dates: start: 20070725, end: 20070725
  52. BENADRYL [Concomitant]
     Route: 048
     Dates: start: 20070725, end: 20070725
  53. BENADRYL [Concomitant]
     Route: 048
     Dates: start: 20070622, end: 20070622
  54. BENADRYL [Concomitant]
     Route: 048
     Dates: start: 20070615, end: 20070615
  55. BENADRYL [Concomitant]
     Route: 048
     Dates: start: 20070613, end: 20070613
  56. BENADRYL [Concomitant]
     Route: 048
     Dates: start: 20070620, end: 20070620
  57. UREACIN-20 20% [Concomitant]
     Route: 061
  58. CALCITRIOL [Concomitant]
     Route: 048
  59. LOPERAMIDE [Concomitant]
     Route: 048
  60. PRAVASTATIN [Concomitant]
     Route: 048
  61. FOSRENOL [Concomitant]
     Dosage: CHEW
     Route: 048
  62. METOCLOPRAMIDE [Concomitant]
     Route: 048
  63. NITROGLYCERIN [Concomitant]
     Route: 060
  64. OMEPRAZOLE [Concomitant]
     Route: 048
  65. TREMADOL [Concomitant]
  66. POLYETHYLENE GLYCOL 3350 AND ELECTOLYTES [Concomitant]
     Route: 048
  67. CARDIZEM [Concomitant]

REACTIONS (23)
  - ANXIETY [None]
  - BURNING SENSATION [None]
  - DERMATITIS [None]
  - DRY SKIN [None]
  - EMOTIONAL DISTRESS [None]
  - ERYTHEMA [None]
  - INJURY [None]
  - JOINT RANGE OF MOTION DECREASED [None]
  - JOINT STIFFNESS [None]
  - MOTOR DYSFUNCTION [None]
  - NEPHROGENIC SYSTEMIC FIBROSIS [None]
  - OEDEMA PERIPHERAL [None]
  - PAIN [None]
  - PAIN IN EXTREMITY [None]
  - PERIPHERAL COLDNESS [None]
  - PRURITUS [None]
  - SCAR [None]
  - SCLERODACTYLIA [None]
  - SKIN DISCOLOURATION [None]
  - SKIN EXFOLIATION [None]
  - SKIN FISSURES [None]
  - SKIN INDURATION [None]
  - SKIN TIGHTNESS [None]
